FAERS Safety Report 8901898 (Version 1)
Quarter: 2012Q4

REPORT INFORMATION
  Report Type: 
  Country: US (occurrence: None)
  Receive Date: 20121109
  Receipt Date: 20121109
  Transmission Date: 20130627
  Serious: Yes (Hospitalization)
  Sender: FDA-Public Use
  Company Number: None

PATIENT
  Sex: Male
  Weight: 11.4 kg

DRUGS (8)
  1. CYCLOPHOSPHAMIDE [Suspect]
     Dates: end: 20120920
  2. CYTARABINE [Suspect]
     Dates: end: 20121012
  3. HYDROCORTISONE [Suspect]
     Dates: end: 20121012
  4. MERCAPTOPURINE [Suspect]
     Dates: end: 20121003
  5. METHOTREXATE [Suspect]
     Dates: end: 20121012
  6. PEGASPARGASE [Suspect]
     Dates: end: 20121004
  7. VINCRISTINE SULFATE [Suspect]
     Dates: end: 20121012
  8. DEXAMETHASONE [Concomitant]

REACTIONS (4)
  - Febrile neutropenia [None]
  - Cough [None]
  - Diarrhoea [None]
  - Tachypnoea [None]
